FAERS Safety Report 17979788 (Version 2)
Quarter: 2020Q3

REPORT INFORMATION
  Report Type: Spontaneous
  Country: IT (occurrence: IT)
  Receive Date: 20200703
  Receipt Date: 20200720
  Transmission Date: 20201103
  Serious: Yes (Hospitalization, Other)
  Sender: FDA-Public Use
  Company Number: PHHY2019IT093842

PATIENT
  Age: 25 Year
  Sex: Female

DRUGS (10)
  1. PREDNISONE. [Concomitant]
     Active Substance: PREDNISONE
     Indication: COLITIS ULCERATIVE
     Dosage: 50 MG, QD
     Route: 048
  2. PREDNISONE. [Concomitant]
     Active Substance: PREDNISONE
     Indication: CROHN^S DISEASE
     Dosage: 25 MG, QD (TAPERED)
     Route: 048
  3. ADALIMUMAB [Concomitant]
     Active Substance: ADALIMUMAB
     Dosage: UNK (MAINTENANCE)
     Route: 065
  4. ADALIMUMAB [Concomitant]
     Active Substance: ADALIMUMAB
     Indication: CROHN^S DISEASE
     Dosage: UNK (INDUCTION REGIMEN)
     Route: 065
  5. INFLIXIMAB [Suspect]
     Active Substance: INFLIXIMAB
     Dosage: UNK (6TH DOSE OF IFX)
     Route: 041
  6. ADALIMUMAB [Concomitant]
     Active Substance: ADALIMUMAB
     Dosage: UNK, WEEKLY (REDUCED TO EVERY WEEK FOR ONE MONTH)
     Route: 065
  7. AZATHIOPRINE. [Suspect]
     Active Substance: AZATHIOPRINE
     Indication: COLITIS ULCERATIVE
     Dosage: 2.5 MG/KG
     Route: 065
  8. INFLIXIMAB [Suspect]
     Active Substance: INFLIXIMAB
     Indication: CROHN^S DISEASE
     Dosage: 5 MG/KG, (5TH INFUSION)
     Route: 041
  9. MESALAZINE [Suspect]
     Active Substance: MESALAMINE
     Indication: COLITIS ULCERATIVE
     Dosage: UNK
     Route: 054
  10. PREDNISOLONE. [Concomitant]
     Active Substance: PREDNISOLONE
     Indication: PRODUCT USED FOR UNKNOWN INDICATION
     Dosage: UNK
     Route: 065

REACTIONS (3)
  - Interstitial lung disease [Recovering/Resolving]
  - Crohn^s disease [Unknown]
  - Therapy non-responder [Unknown]
